FAERS Safety Report 15136397 (Version 2)
Quarter: 2021Q2

REPORT INFORMATION
  Report Type: Report from Study
  Country: CA (occurrence: CA)
  Receive Date: 20180712
  Receipt Date: 20210504
  Transmission Date: 20210716
  Serious: Yes (Hospitalization)
  Sender: FDA-Public Use
  Company Number: CA-ASTRAZENECA-2018SE82660

PATIENT
  Age: 76 Year
  Sex: Male

DRUGS (9)
  1. GOSERELIN [Concomitant]
     Active Substance: GOSERELIN
     Route: 065
     Dates: start: 20131231
  2. TRIAMCINOLONE [Concomitant]
     Active Substance: TRIAMCINOLONE
     Route: 065
     Dates: start: 20180607
  3. DURVALUMAB. [Suspect]
     Active Substance: DURVALUMAB
     Indication: URINARY TRACT NEOPLASM
     Route: 042
     Dates: start: 20180613, end: 20180613
  4. TREMELIMUMAB. [Suspect]
     Active Substance: TREMELIMUMAB
     Indication: URINARY TRACT NEOPLASM
     Route: 042
     Dates: start: 20180613, end: 20180613
  5. ZANTAC [Concomitant]
     Active Substance: RANITIDINE HYDROCHLORIDE
     Route: 065
     Dates: start: 2015
  6. EZETIMIBE. [Concomitant]
     Active Substance: EZETIMIBE
     Route: 065
     Dates: start: 20180625
  7. PREDNISONE. [Concomitant]
     Active Substance: PREDNISONE
     Route: 065
     Dates: start: 2015, end: 2018
  8. HYDROCHLOROTHIAZIDE. [Concomitant]
     Active Substance: HYDROCHLOROTHIAZIDE
     Route: 065
     Dates: start: 20100621
  9. ENZALUTAMIDE [Concomitant]
     Active Substance: ENZALUTAMIDE
     Route: 065

REACTIONS (1)
  - Guillain-Barre syndrome [Recovered/Resolved]

NARRATIVE: CASE EVENT DATE: 20180625
